FAERS Safety Report 16460293 (Version 2)
Quarter: 2019Q3

REPORT INFORMATION
  Report Type: Spontaneous
  Country: ES (occurrence: ES)
  Receive Date: 20190620
  Receipt Date: 20190731
  Transmission Date: 20191004
  Serious: Yes (Other)
  Sender: FDA-Public Use
  Company Number: ES-AMGEN-ESPSP2019095535

PATIENT
  Age: 29 Year
  Sex: Female

DRUGS (20)
  1. PANITUMUMAB [Suspect]
     Active Substance: PANITUMUMAB
     Indication: METASTASES TO LIVER
  2. FOLINIC ACID [Suspect]
     Active Substance: LEUCOVORIN
     Indication: METASTASES TO LIVER
  3. 5-FU [FLUOROURACIL] [Suspect]
     Active Substance: FLUOROURACIL
     Indication: COLORECTAL CANCER
  4. OXALIPLATIN. [Suspect]
     Active Substance: OXALIPLATIN
     Indication: METASTASES TO LIVER
  5. PANITUMUMAB [Suspect]
     Active Substance: PANITUMUMAB
     Indication: ADENOCARCINOMA OF COLON
     Dosage: UNK UNK, CYCLICAL
     Route: 065
     Dates: start: 20160615, end: 2016
  6. FOLINIC ACID [Suspect]
     Active Substance: LEUCOVORIN
     Indication: ADENOCARCINOMA OF COLON
     Dosage: UNK UNK, CYCLICAL
     Route: 065
     Dates: start: 20160615
  7. PANITUMUMAB [Suspect]
     Active Substance: PANITUMUMAB
     Indication: METASTASES TO LUNG
     Dosage: UNK UNK, CYCLICAL 80 % DOSE REDUCTION AND MAINTAINED TO 60 PERCENT
     Route: 065
     Dates: start: 2016, end: 2017
  8. 5-FU [FLUOROURACIL] [Suspect]
     Active Substance: FLUOROURACIL
     Indication: METASTASES TO LIVER
  9. OXALIPLATIN. [Suspect]
     Active Substance: OXALIPLATIN
     Indication: COLORECTAL CANCER
  10. IRINOTECAN [Suspect]
     Active Substance: IRINOTECAN
     Indication: METASTASES TO LUNG
  11. FOLINIC ACID [Suspect]
     Active Substance: LEUCOVORIN
     Indication: COLORECTAL CANCER
  12. IRINOTECAN [Suspect]
     Active Substance: IRINOTECAN
     Indication: ADENOCARCINOMA OF COLON
     Dosage: UNK UNK, CYCLICAL
     Route: 065
     Dates: start: 20171127, end: 20180512
  13. IRINOTECAN [Suspect]
     Active Substance: IRINOTECAN
     Indication: COLORECTAL CANCER
  14. OXALIPLATIN. [Suspect]
     Active Substance: OXALIPLATIN
     Indication: ADENOCARCINOMA OF COLON
     Dosage: UNK UNK, CYCLICAL
     Route: 065
     Dates: start: 20160615, end: 201710
  15. OXALIPLATIN. [Suspect]
     Active Substance: OXALIPLATIN
     Indication: METASTASES TO LUNG
     Dosage: UNK
     Route: 065
     Dates: start: 201809
  16. IRINOTECAN [Suspect]
     Active Substance: IRINOTECAN
     Indication: METASTASES TO LIVER
  17. 5-FU [FLUOROURACIL] [Suspect]
     Active Substance: FLUOROURACIL
     Indication: METASTASES TO LUNG
  18. PANITUMUMAB [Suspect]
     Active Substance: PANITUMUMAB
     Indication: COLORECTAL CANCER
  19. FOLINIC ACID [Suspect]
     Active Substance: LEUCOVORIN
     Indication: METASTASES TO LUNG
  20. 5-FU [FLUOROURACIL] [Suspect]
     Active Substance: FLUOROURACIL
     Indication: ADENOCARCINOMA OF COLON
     Dosage: UNK UNK, CYCLICAL
     Route: 065
     Dates: start: 20160615

REACTIONS (11)
  - Deep vein thrombosis [Unknown]
  - Anaemia [Unknown]
  - Rash [Unknown]
  - Stomatitis [Unknown]
  - Dyspnoea [Unknown]
  - Therapy partial responder [Unknown]
  - Nasal septum perforation [Unknown]
  - Wheezing [Unknown]
  - Skin toxicity [Unknown]
  - Adenocarcinoma of colon [Unknown]
  - Neutropenia [Unknown]

NARRATIVE: CASE EVENT DATE: 201606
